FAERS Safety Report 9272729 (Version 3)
Quarter: 2013Q3

REPORT INFORMATION
  Report Type: Spontaneous
  Country: US (occurrence: US)
  Receive Date: 20130506
  Receipt Date: 20130703
  Transmission Date: 20140515
  Serious: Yes (Death)
  Sender: FDA-Public Use
  Company Number: US-JNJFOC-20130500447

PATIENT
  Sex: Female

DRUGS (5)
  1. DOXORUBICIN HYDROCHLORIDE [Suspect]
     Indication: BREAST CANCER
     Dosage: FOR 4 CYCLES PREOPERATIVELY.
     Route: 042
  2. CARBOPLATIN [Suspect]
     Indication: BREAST CANCER
     Dosage: AT AREA UNDER THE CURVE AUC 6.0 ON DAY 1
     Route: 065
  3. PACLITAXEL [Suspect]
     Indication: BREAST CANCER
     Dosage: ON DAYS 1, 8, AND 15 EVERY 28 DAYS FOR 4 CYCLES
     Route: 065
  4. CYCLOPHOSPHAMIDE [Suspect]
     Indication: BREAST CANCER
     Dosage: EVERY 14 DAYS 4 CYCLES PREOPERATIVELY
     Route: 065
  5. BEVACIZUMAB [Suspect]
     Indication: BREAST CANCER
     Dosage: GIVEN WITH 1ST 6 CYCLE OF PREOPERATIVE CHEMOTHERAPY AND CONTINUED POSTOPERATIVELY TO COMPLETE 1 YEAR
     Route: 065

REACTIONS (1)
  - Death [Fatal]
